FAERS Safety Report 8936838 (Version 1)
Quarter: 2012Q4

REPORT INFORMATION
  Report Type: Report from Study
  Country: ES (occurrence: ES)
  Receive Date: 20121130
  Receipt Date: 20121130
  Transmission Date: 20130627
  Serious: Yes (Hospitalization, Other)
  Sender: FDA-Public Use
  Company Number: ES-ROCHE-1157162

PATIENT
  Age: 48 Year
  Sex: Male

DRUGS (5)
  1. MYCOPHENOLATE MOFETIL [Suspect]
     Indication: IMMUNOSUPPRESSION
     Route: 065
  2. TACROLIMUS [Suspect]
     Indication: IMMUNOSUPPRESSION
     Route: 065
  3. VALGANCICLOVIR [Suspect]
     Indication: TRANSPLANT
     Route: 065
  4. VALGANCICLOVIR [Suspect]
     Route: 048
  5. VALGANCICLOVIR [Suspect]
     Route: 048

REACTIONS (8)
  - Respiratory failure [Unknown]
  - Pneumocystis jiroveci pneumonia [Unknown]
  - Cytomegalovirus infection [Unknown]
  - Gastrointestinal disorder [Unknown]
  - Asthenia [Unknown]
  - Weight decreased [Unknown]
  - Haemoglobin decreased [Unknown]
  - Blood creatinine increased [Unknown]
